FAERS Safety Report 15549165 (Version 1)
Quarter: 2018Q4

REPORT INFORMATION
  Report Type: Spontaneous
  Country: UA (occurrence: UA)
  Receive Date: 20181025
  Receipt Date: 20181025
  Transmission Date: 20190205
  Serious: Yes (Hospitalization, Other)
  Sender: FDA-Public Use
  Company Number: UA-ASTRAZENECA-2018SF39172

PATIENT
  Sex: Male

DRUGS (1)
  1. BRILINTA [Suspect]
     Active Substance: TICAGRELOR
     Route: 048

REACTIONS (4)
  - Leukocytosis [Unknown]
  - Red blood cell sedimentation rate increased [Unknown]
  - Jaundice [Unknown]
  - Anaemia [Unknown]
